FAERS Safety Report 8231719-2 (Version None)
Quarter: 2012Q1

REPORT INFORMATION
  Report Type: 
  Country: None (occurrence: None)
  Receive Date: 20120323
  Receipt Date: 20120320
  Transmission Date: 20120608
  Serious: Yes (Hospitalization)
  Sender: FDA-Public Use
  Company Number: US-GILEAD-2012-0052024

PATIENT
  Sex: Female

DRUGS (4)
  1. LETAIRIS [Suspect]
     Indication: PULMONARY HYPERTENSION
     Dosage: 5 MG, UNK
     Route: 048
     Dates: start: 20120302
  2. ADCIRCA [Concomitant]
  3. LETAIRIS [Suspect]
     Indication: SCLERODERMA
  4. REMODULIN [Concomitant]

REACTIONS (3)
  - DYSPNOEA [None]
  - HEART RATE INCREASED [None]
  - SCLERODERMA [None]
